FAERS Safety Report 10342869 (Version 1)
Quarter: 2014Q3

REPORT INFORMATION
  Report Type: Report from Study
  Country: VE (occurrence: VE)
  Receive Date: 20140725
  Receipt Date: 20140725
  Transmission Date: 20150326
  Serious: Yes (Hospitalization, Other)
  Sender: FDA-Public Use
  Company Number: VE-ABBVIE-14K-178-1263727-00

PATIENT
  Age: 86 Year
  Sex: Female
  Weight: 50 kg

DRUGS (4)
  1. METHOTREXATE [Concomitant]
     Active Substance: METHOTREXATE
     Indication: PRODUCT USED FOR UNKNOWN INDICATION
     Route: 048
     Dates: start: 20100517, end: 20140628
  2. HUMIRA [Suspect]
     Active Substance: ADALIMUMAB
     Indication: RHEUMATOID ARTHRITIS
     Route: 058
     Dates: start: 20100517, end: 20140605
  3. CALCIBON D [Concomitant]
     Indication: OSTEOPOROSIS
     Route: 048
     Dates: start: 2010, end: 20140628
  4. HUMIRA [Suspect]
     Active Substance: ADALIMUMAB
     Route: 058
     Dates: start: 20140801

REACTIONS (3)
  - Corneal transplant [Unknown]
  - Infarction [Recovering/Resolving]
  - Eye operation [Recovered/Resolved]

NARRATIVE: CASE EVENT DATE: 2011
